FAERS Safety Report 9067404 (Version 4)
Quarter: 2013Q2

REPORT INFORMATION
  Report Type: Spontaneous
  Country: JP (occurrence: JP)
  Receive Date: 20130214
  Receipt Date: 20130419
  Transmission Date: 20140414
  Serious: Yes (Hospitalization)
  Sender: FDA-Public Use
  Company Number: JP-ABBOTT-13P-087-1048211-00

PATIENT
  Age: 42 Year
  Sex: Female

DRUGS (4)
  1. CLARITH [Suspect]
     Indication: PRODUCT USED FOR UNKNOWN INDICATION
  2. AZITHROMYCIN [Suspect]
     Indication: PRODUCT USED FOR UNKNOWN INDICATION
  3. MINOMYCIN [Suspect]
     Indication: PRODUCT USED FOR UNKNOWN INDICATION
  4. LOXOPROFEN [Suspect]

REACTIONS (1)
  - Eosinophilic pneumonia [Recovering/Resolving]
